FAERS Safety Report 15850165 (Version 1)
Quarter: 2019Q1

REPORT INFORMATION
  Report Type: Spontaneous
  Country: US (occurrence: US)
  Receive Date: 20190121
  Receipt Date: 20190121
  Transmission Date: 20190417
  Serious: No
  Sender: FDA-Public Use
  Company Number: US-LANTHEUS-LMI-2018-00533

PATIENT
  Sex: Male

DRUGS (1)
  1. CARDIOLITE [Suspect]
     Active Substance: TECHNETIUM TC-99M SESTAMIBI
     Indication: SCAN MYOCARDIAL PERFUSION
     Dosage: 10 MCI, UNK
     Route: 065
     Dates: start: 20181005, end: 20181005

REACTIONS (2)
  - Drug ineffective [Unknown]
  - Product preparation error [Unknown]

NARRATIVE: CASE EVENT DATE: 20181005
